FAERS Safety Report 23501505 (Version 1)
Quarter: 2024Q1

REPORT INFORMATION
  Report Type: Spontaneous
  Country: BE (occurrence: BE)
  Receive Date: 20240208
  Receipt Date: 20240208
  Transmission Date: 20240409
  Serious: Yes (Hospitalization, Other)
  Sender: FDA-Public Use
  Company Number: BE-SA-SAC20240205000276

PATIENT
  Sex: Male

DRUGS (2)
  1. AUBAGIO [Suspect]
     Active Substance: TERIFLUNOMIDE
     Dosage: 14 MG
     Dates: start: 202210
  2. HULIO [Concomitant]
     Active Substance: ADALIMUMAB-FKJP
     Dosage: 1 X/2 WEEKS

REACTIONS (1)
  - Haemolytic anaemia [Unknown]
